FAERS Safety Report 8214902-1 (Version None)
Quarter: 2012Q1

REPORT INFORMATION
  Report Type: 
  Country: None (occurrence: None)
  Receive Date: 20120316
  Receipt Date: 20120309
  Transmission Date: 20120608
  Serious: Yes (Other)
  Sender: FDA-Public Use
  Company Number: US-JNJFOC-20120305858

PATIENT
  Sex: Female
  Weight: 89.36 kg

DRUGS (2)
  1. NUCYNTA ER [Suspect]
     Indication: PAIN
     Dosage: 1 TO 2 TABLETS DAILY AS NEEDED
     Route: 048
     Dates: start: 20120101
  2. NUCYNTA ER [Suspect]
     Indication: PAIN
     Dosage: 1 - 2 TABLETS DAILY AS NEEDED EVERY 4 - 6 HOURS
     Route: 048
     Dates: start: 20110101, end: 20120101

REACTIONS (2)
  - DRUG EFFECT DECREASED [None]
  - ABNORMAL LOSS OF WEIGHT [None]
